FAERS Safety Report 24911240 (Version 3)
Quarter: 2025Q1

REPORT INFORMATION
  Report Type: Spontaneous
  Country: ES (occurrence: ES)
  Receive Date: 20250131
  Receipt Date: 20250228
  Transmission Date: 20250408
  Serious: Yes (Life-Threatening, Hospitalization, Other)
  Sender: CHATTEM
  Company Number: ES-MLMSERVICE-20250122-PI364579-00279-2

PATIENT
  Age: 32 Year
  Sex: Female

DRUGS (3)
  1. RANITIDINE [Suspect]
     Active Substance: RANITIDINE
     Indication: Abdominal pain
     Route: 042
     Dates: start: 202008
  2. RANITIDINE [Suspect]
     Active Substance: RANITIDINE
     Indication: Dyspepsia
  3. EPINEPHRINE [Suspect]
     Active Substance: EPINEPHRINE
     Indication: Kounis syndrome
     Route: 030
     Dates: start: 202008

REACTIONS (16)
  - Anaphylactic reaction [Recovered/Resolved]
  - Stress cardiomyopathy [Recovered/Resolved]
  - Kounis syndrome [Recovered/Resolved]
  - Pulmonary oedema [Recovered/Resolved]
  - Akinesia [Recovered/Resolved]
  - Myocardial ischaemia [Recovered/Resolved]
  - Rales [Recovered/Resolved]
  - Lung infiltration [Recovered/Resolved]
  - Haemoptysis [Recovered/Resolved]
  - Vomiting [Recovered/Resolved]
  - Dyspnoea [Recovered/Resolved]
  - Chest pain [Recovered/Resolved]
  - Urticaria [Recovered/Resolved]
  - Cardiac failure congestive [Recovered/Resolved]
  - Cardiogenic shock [Recovered/Resolved]
  - Drug hypersensitivity [Recovered/Resolved]

NARRATIVE: CASE EVENT DATE: 20200801
